FAERS Safety Report 17270698 (Version 1)
Quarter: 2020Q1

REPORT INFORMATION
  Report Type: Spontaneous
  Country: FR (occurrence: FR)
  Receive Date: 20200114
  Receipt Date: 20200114
  Transmission Date: 20200409
  Serious: Yes (Hospitalization)
  Sender: FDA-Public Use
  Company Number: FR-009507513-2001FRA001837

PATIENT
  Age: 75 Year
  Sex: Male

DRUGS (1)
  1. KEYTRUDA [Suspect]
     Active Substance: PEMBROLIZUMAB
     Indication: MALIGNANT MELANOMA
     Dosage: 190 MILLIGRAM, 1 CYCLICAL, POWDER FOR SOLUTION TO DILUTE FOR  INFUSION
     Route: 041
     Dates: start: 20180425

REACTIONS (1)
  - Palmoplantar keratoderma [Recovered/Resolved]

NARRATIVE: CASE EVENT DATE: 20180808
